FAERS Safety Report 7047180-X (Version None)
Quarter: 2010Q4

REPORT INFORMATION
  Report Type: 
  Country: None (occurrence: None)
  Receive Date: 20101014
  Receipt Date: 20101014
  Transmission Date: 20110411
  Serious: No
  Sender: FDA-Public Use
  Company Number: None

PATIENT
  Sex: Female
  Weight: 55 kg

DRUGS (2)
  1. TAXOL [Suspect]
     Dosage: 268 MG
     Dates: end: 20100907
  2. TOPOTECAN [Suspect]
     Dosage: 3.45 MG, 1.5 MG GIVEN ON DAYS 1,2 AND 3
     Dates: end: 20100909

REACTIONS (4)
  - CERVIX CARCINOMA RECURRENT [None]
  - COLONIC POLYP [None]
  - CONSTIPATION [None]
  - GASTROENTERITIS RADIATION [None]
